FAERS Safety Report 9830238 (Version 1)
Quarter: 2014Q1

REPORT INFORMATION
  Report Type: Spontaneous
  Country: HU (occurrence: HU)
  Receive Date: 20140120
  Receipt Date: 20140120
  Transmission Date: 20141002
  Serious: Yes (Death)
  Sender: FDA-Public Use
  Company Number: HU-ACTELION-A-CH2014-93561

PATIENT
  Age: 67 Year
  Sex: Female

DRUGS (1)
  1. TRACLEER [Suspect]
     Indication: PRODUCT USED FOR UNKNOWN INDICATION
     Dosage: 62.5 MG, BID
     Route: 048
     Dates: start: 20131021, end: 20131231

REACTIONS (1)
  - Death [Fatal]
